FAERS Safety Report 19463522 (Version 2)
Quarter: 2021Q3

REPORT INFORMATION
  Report Type: Report from Study
  Country: US (occurrence: US)
  Receive Date: 20210625
  Receipt Date: 20210716
  Transmission Date: 20211014
  Serious: Yes (Death, Hospitalization, Other)
  Sender: FDA-Public Use
  Company Number: US-ALXN-A202107222

PATIENT
  Age: 57 Year
  Sex: Female
  Weight: 64 kg

DRUGS (5)
  1. SOLIRIS [Suspect]
     Active Substance: ECULIZUMAB
     Indication: OFF LABEL USE
     Dosage: 900 MG, SECOND INFUSION
     Route: 042
     Dates: start: 20210610
  2. LOPRESSOR [Concomitant]
     Active Substance: METOPROLOL TARTRATE
     Indication: BLOOD PRESSURE MEASUREMENT
     Dosage: UNK, BID
     Route: 048
  3. SOLIRIS [Suspect]
     Active Substance: ECULIZUMAB
     Indication: MALIGNANT ATROPHIC PAPULOSIS
     Dosage: 1200 MG, FIRST INFUSION
     Route: 042
     Dates: start: 20210603
  4. PENICILLIN V POTASSIUM. [Concomitant]
     Active Substance: PENICILLIN V POTASSIUM
     Indication: PROPHYLAXIS
     Dosage: 500 MG, BID
     Route: 065
  5. DULCOLAX (BISACODYL) [Concomitant]
     Active Substance: BISACODYL
     Indication: PRODUCT USED FOR UNKNOWN INDICATION
     Dosage: UNK
     Route: 065
     Dates: start: 20210610

REACTIONS (18)
  - Condition aggravated [Fatal]
  - Pyrexia [Unknown]
  - Respiratory failure [Unknown]
  - Off label use [Unknown]
  - Hypotension [Unknown]
  - Haemoglobin decreased [Unknown]
  - Ventricular tachycardia [Unknown]
  - Hypercapnia [Unknown]
  - Iliac artery embolism [Unknown]
  - Malnutrition [Unknown]
  - Pain [Unknown]
  - Malignant atrophic papulosis [Fatal]
  - Abdominal wall haematoma [Unknown]
  - Intestinal perforation [Fatal]
  - Hypoventilation [Unknown]
  - Hydronephrosis [Unknown]
  - Haemoperitoneum [Unknown]
  - Oxygen saturation decreased [Unknown]

NARRATIVE: CASE EVENT DATE: 20210604
